FAERS Safety Report 7502854-9 (Version None)
Quarter: 2011Q2

REPORT INFORMATION
  Report Type: 
  Country: None (occurrence: None)
  Receive Date: 20110525
  Receipt Date: 20100829
  Transmission Date: 20111010
  Serious: No
  Sender: FDA-Public Use
  Company Number: US-NOVEN-ALL1-2010-04552

PATIENT
  Sex: Male
  Weight: 18.594 kg

DRUGS (1)
  1. DAYTRANA [Suspect]
     Dosage: 20 MG, 1X/DAY:QD
     Route: 062
     Dates: start: 20100501

REACTIONS (7)
  - PRODUCT QUALITY ISSUE [None]
  - APPLICATION SITE IRRITATION [None]
  - APPLICATION SITE PRURITUS [None]
  - APPLICATION SITE DRYNESS [None]
  - OFF LABEL USE [None]
  - APPLICATION SITE SWELLING [None]
  - APPLICATION SITE ERYTHEMA [None]
